FAERS Safety Report 20845833 (Version 1)
Quarter: 2022Q2

REPORT INFORMATION
  Report Type: Spontaneous
  Country: NO (occurrence: NO)
  Receive Date: 20220518
  Receipt Date: 20220518
  Transmission Date: 20220720
  Serious: Yes (Other)
  Sender: FDA-Public Use
  Company Number: NO-INSUD PHARMA-2205NO01873

PATIENT

DRUGS (2)
  1. ISIBLOOM [Suspect]
     Active Substance: DESOGESTREL\ETHINYL ESTRADIOL
     Indication: Product used for unknown indication
     Dosage: UNKNOWN
     Route: 048
  2. ASTRAZENECA COVID-19 VACCINE [Suspect]
     Active Substance: AZD-1222
     Indication: COVID-19 immunisation
     Dosage: RECENTLY RECEIVED FIRST DOSE
     Route: 065

REACTIONS (3)
  - Acute macular neuroretinopathy [Unknown]
  - Visual field defect [Unknown]
  - Visual impairment [Unknown]
